FAERS Safety Report 5139046-7 (Version None)
Quarter: 2006Q4

REPORT INFORMATION
  Report Type: 
  Country: None (occurrence: None)
  Receive Date: 20061030
  Receipt Date: 20060612
  Transmission Date: 20070319
  Serious: No
  Sender: FDA-Public Use
  Company Number: US-GLAXOSMITHKLINE-A0608661A

PATIENT
  Age: 41 Year
  Sex: Female

DRUGS (8)
  1. ADVAIR HFA [Suspect]
     Indication: ASTHMA
     Dosage: 250MCG TWICE PER DAY
     Route: 055
  2. LAMICTAL [Concomitant]
  3. CYMBALTA [Concomitant]
  4. LITHIUM CARBONATE [Concomitant]
  5. SEROQUEL [Concomitant]
  6. AMBIEN [Concomitant]
  7. SYNTHROID [Concomitant]
  8. AVANDIA [Concomitant]

REACTIONS (1)
  - DRUG INEFFECTIVE [None]
